FAERS Safety Report 4402781-X (Version None)
Quarter: 2004Q3

REPORT INFORMATION
  Report Type: 
  Country: None (occurrence: None)
  Receive Date: 20040720
  Receipt Date: 20040720
  Transmission Date: 20050211
  Serious: Yes (Hospitalization)
  Sender: FDA-Public Use
  Company Number: None

PATIENT
  Sex: Male
  Weight: 62.8 kg

DRUGS (5)
  1. DURAGESIC [Suspect]
     Indication: PAIN
     Dosage: 25 MCG Q72HRS TD
     Route: 062
  2. BOOST PLUS [Suspect]
     Indication: CARCINOMA
     Dosage: 60 CC HOUR TF
     Route: 050
     Dates: start: 20040614
  3. ZOCOR [Suspect]
     Indication: HYPERLIPIDAEMIA
     Dosage: 40MG DAILY PO
     Route: 048
  4. PEPCID [Suspect]
     Indication: GASTROOESOPHAGEAL REFLUX DISEASE
     Dosage: 20MG BID PO
     Route: 048
  5. IRESSA [Suspect]
     Indication: CARCINOMA
     Dosage: 250 MG DAILY PO
     Route: 048
     Dates: start: 20040524, end: 20040625

REACTIONS (15)
  - ATRIAL FIBRILLATION [None]
  - BENIGN PROSTATIC HYPERPLASIA [None]
  - CARDIOMEGALY [None]
  - COLITIS ISCHAEMIC [None]
  - DIARRHOEA [None]
  - FREQUENT BOWEL MOVEMENTS [None]
  - HAEMATURIA [None]
  - HYPOTENSION [None]
  - HYPOXIA [None]
  - LUNG INFILTRATION [None]
  - PLEURAL EFFUSION [None]
  - POLLAKIURIA [None]
  - PYREXIA [None]
  - TACHYCARDIA [None]
  - URINARY RETENTION [None]
